FAERS Safety Report 9239935 (Version 2)
Quarter: 2013Q2

REPORT INFORMATION
  Report Type: Spontaneous
  Country: TR (occurrence: TR)
  Receive Date: 20130418
  Receipt Date: 20130418
  Transmission Date: 20140414
  Serious: Yes (Disabling, Other)
  Sender: FDA-Public Use
  Company Number: TR-CUBIST PHARMACEUTICALS, INC.-2013CBST000276

PATIENT
  Sex: 0

DRUGS (7)
  1. CUBICIN [Suspect]
     Indication: PNEUMONIA
     Dosage: UNK UNK, UNK
     Route: 042
     Dates: start: 20130314
  2. CUBICIN [Suspect]
     Indication: POSTOPERATIVE WOUND INFECTION
  3. COLISTIN [Suspect]
     Indication: PNEUMONIA
     Dosage: 450 MG, UNK
     Route: 042
     Dates: start: 20130314, end: 20130327
  4. COLISTIN [Suspect]
     Indication: POSTOPERATIVE WOUND INFECTION
  5. IMIPENEM [Suspect]
     Indication: PNEUMONIA
     Dosage: 2000 MG, UNK
     Route: 042
     Dates: start: 20130314, end: 20130327
  6. IMIPENEM [Suspect]
     Indication: POSTOPERATIVE WOUND INFECTION
  7. ALL OTHER THERAPEUTIC PRODUCTS [Concomitant]
     Indication: CARDIAC DISORDER
     Dosage: UNK UNK, UNK

REACTIONS (3)
  - Deafness bilateral [Not Recovered/Not Resolved]
  - Neuropathy peripheral [Unknown]
  - Ototoxicity [None]
